FAERS Safety Report 20516723 (Version 2)
Quarter: 2022Q1

REPORT INFORMATION
  Report Type: Report from Study
  Country: US (occurrence: US)
  Receive Date: 20220225
  Receipt Date: 20220303
  Transmission Date: 20220423
  Serious: No
  Sender: FDA-Public Use
  Company Number: US-NOVARTISTESTPH-NVSC2022US042873

PATIENT
  Sex: Male

DRUGS (1)
  1. ENTRESTO [Suspect]
     Active Substance: SACUBITRIL\VALSARTAN
     Indication: Product used for unknown indication
     Dosage: 24.26 MG, BID (24/26 MG (SACUBITRIL 24.3 MG, VALSARTAN 25.7 MG))
     Route: 048

REACTIONS (2)
  - Blood pressure abnormal [Unknown]
  - Wrong technique in product usage process [Unknown]
